FAERS Safety Report 9460605 (Version 3)
Quarter: 2013Q3

REPORT INFORMATION
  Report Type: Spontaneous
  Country: US (occurrence: US)
  Receive Date: 20130815
  Receipt Date: 20130902
  Transmission Date: 20140515
  Serious: Yes (Hospitalization)
  Sender: FDA-Public Use
  Company Number: US-009507513-1308USA006207

PATIENT
  Age: 79 Year
  Sex: Female

DRUGS (6)
  1. DULERA [Suspect]
     Indication: ASTHMA
     Dosage: 100 MCG/ 5 MCG/ ONE PUFF ONCE DAILY
     Route: 055
     Dates: start: 20130806, end: 20130808
  2. COREG [Concomitant]
  3. NORVASC [Concomitant]
  4. GLYBURIDE [Concomitant]
  5. PROAIR (ALBUTEROL SULFATE) [Concomitant]
  6. NASONEX [Concomitant]

REACTIONS (3)
  - Heart rate abnormal [Recovering/Resolving]
  - Underdose [Unknown]
  - Atrial fibrillation [Recovering/Resolving]
